FAERS Safety Report 23056401 (Version 1)
Quarter: 2023Q4

REPORT INFORMATION
  Report Type: Spontaneous
  Country: US (occurrence: US)
  Receive Date: 20231011
  Receipt Date: 20231011
  Transmission Date: 20240110
  Serious: Yes (Other)
  Sender: FDA-Public Use
  Company Number: US-BAYER-2023A142477

PATIENT
  Age: 74 Year
  Sex: Male

DRUGS (3)
  1. ASPIRIN [Suspect]
     Active Substance: ASPIRIN
  2. HEPARIN [Suspect]
     Active Substance: HEPARIN SODIUM
  3. APIXABAN [Concomitant]
     Active Substance: APIXABAN

REACTIONS (4)
  - Gastrointestinal haemorrhage [None]
  - Labelled drug-drug interaction medication error [None]
  - Haemoglobin decreased [None]
  - Hypotension [None]
